FAERS Safety Report 14675952 (Version 1)
Quarter: 2018Q1

REPORT INFORMATION
  Report Type: Spontaneous
  Country: US (occurrence: US)
  Receive Date: 20180323
  Receipt Date: 20180323
  Transmission Date: 20180509
  Serious: No
  Sender: FDA-Public Use
  Company Number: US-PERRIGO-18US001172

PATIENT
  Age: 67 Year
  Sex: Female

DRUGS (1)
  1. FAMOTIDINE, CALCIUM CARBONATE, AND MAGNESIUM HYDROXIDE [Suspect]
     Active Substance: CALCIUM CARBONATE\FAMOTIDINE\MAGNESIUM HYDROXIDE
     Indication: PROPHYLAXIS
     Dosage: 1 TABLET, QD
     Route: 048
     Dates: start: 20180110, end: 20180118

REACTIONS (3)
  - Rash pruritic [Recovered/Resolved]
  - Hypersensitivity [Recovering/Resolving]
  - Off label use [Recovered/Resolved]

NARRATIVE: CASE EVENT DATE: 20180110
